FAERS Safety Report 5724698-0 (Version None)
Quarter: 2008Q2

REPORT INFORMATION
  Report Type: 
  Country: None (occurrence: None)
  Receive Date: 20080430
  Receipt Date: 20080430
  Transmission Date: 20081010
  Serious: Yes (Other)
  Sender: FDA-Public Use
  Company Number: None

PATIENT
  Sex: Female
  Weight: 54.4316 kg

DRUGS (5)
  1. VESICARE [Suspect]
     Indication: HYPERTONIC BLADDER
     Dosage: 1 DAILY PO
     Route: 048
     Dates: start: 20080417, end: 20080425
  2. SYNTHROID [Concomitant]
  3. PREVACID [Concomitant]
  4. VITAMIN D [Concomitant]
  5. EVISTA [Concomitant]

REACTIONS (1)
  - ANGIOEDEMA [None]
